FAERS Safety Report 5945394-0 (Version None)
Quarter: 2008Q4

REPORT INFORMATION
  Report Type: 
  Country: None (occurrence: None)
  Receive Date: 20081107
  Receipt Date: 20081028
  Transmission Date: 20090506
  Serious: Yes (Other)
  Sender: FDA-Public Use
  Company Number: PT-JNJFOC-20081006648

PATIENT

DRUGS (8)
  1. INFLIXIMAB [Suspect]
  2. INFLIXIMAB [Suspect]
  3. INFLIXIMAB [Suspect]
  4. INFLIXIMAB [Suspect]
  5. INFLIXIMAB [Suspect]
     Indication: CROHN'S DISEASE
  6. PREDNISOLONE [Concomitant]
     Indication: PREMEDICATION
  7. CLEMASTINE FUMARATE [Concomitant]
     Indication: PREMEDICATION
  8. AZATHIOPRINE [Concomitant]

REACTIONS (4)
  - ARTHRALGIA [None]
  - ASTHENIA [None]
  - INFUSION RELATED REACTION [None]
  - MYALGIA [None]
